FAERS Safety Report 9631982 (Version 2)
Quarter: 2016Q3

REPORT INFORMATION
  Report Type: Spontaneous
  Country: GB (occurrence: None)
  Receive Date: 20131015
  Receipt Date: 20160719
  Transmission Date: 20161109
  Serious: No
  Sender: FDA-Public Use
  Company Number: 1000117969-2013-00001

PATIENT
  Age: 44 Year
  Sex: Female

DRUGS (1)
  1. COLGATE SENSITIVE PRO RELIEF [Suspect]
     Active Substance: POTASSIUM NITRATE\SODIUM FLUORIDE

REACTIONS (3)
  - Hypoaesthesia [None]
  - Paraesthesia oral [None]
  - Hypersensitivity [None]
